FAERS Safety Report 8882358 (Version 2)
Quarter: 2013Q1

REPORT INFORMATION
  Report Type: Report from Study
  Country: GB (occurrence: GB)
  Receive Date: 20121102
  Receipt Date: 20130311
  Transmission Date: 20140127
  Serious: Yes (Hospitalization)
  Sender: FDA-Public Use
  Company Number: GB-SHIRE-ALL1-2012-05296

PATIENT
  Sex: Male
  Weight: 30.6 kg

DRUGS (18)
  1. IDURSULFASE [Suspect]
     Indication: MUCOPOLYSACCHARIDOSIS II
     Dosage: 18 MG, 1X/2WKS
     Route: 041
     Dates: start: 20110914
  2. IDURSULFASE [Suspect]
     Dosage: 12 MG, 1X/2WKS
     Route: 041
     Dates: start: 20110921
  3. IDURSULFASE [Suspect]
     Dosage: 10.65 MG, 1X/WEEK
     Route: 041
     Dates: start: 20040114
  4. IDURSULFASE [Suspect]
     Dosage: 12 MG, 1X/WEEK
     Route: 041
     Dates: start: 20110513, end: 20110828
  5. IBUPROFEN [Concomitant]
     Indication: PAIN IN EXTREMITY
     Dosage: 160 MG, AS REQ^D
     Route: 048
     Dates: start: 20120312
  6. IBUPROFEN [Concomitant]
     Indication: PAIN
  7. HUMAN GROWTH HORMONE, RECOMBINANT [Concomitant]
     Indication: GROWTH RETARDATION
     Dosage: 1.3 MG, 1X/DAY:QD
     Route: 058
     Dates: start: 20111220
  8. HUMAN GROWTH HORMONE, RECOMBINANT [Concomitant]
     Dosage: 1.2 MG, 1X/DAY:QD
     Route: 058
     Dates: start: 201107, end: 20111220
  9. HUMAN GROWTH HORMONE, RECOMBINANT [Concomitant]
     Dosage: 1 MG, 1X/DAY:QD
     Route: 058
     Dates: start: 201104, end: 201107
  10. HUMAN GROWTH HORMONE, RECOMBINANT [Concomitant]
     Dosage: 0.5 MG, 1X/DAY:QD
     Route: 058
     Dates: start: 20110310, end: 201104
  11. HUMAN GROWTH HORMONE, RECOMBINANT [Concomitant]
     Dosage: UNK
  12. LISINOPRIL [Concomitant]
     Indication: CARDIOMYOPATHY
     Dosage: 5 MG, 1X/DAY:QD
     Route: 048
     Dates: start: 20101117
  13. LISINOPRIL [Concomitant]
     Dosage: 2.5 MG, 1X/DAY:QD
     Route: 048
     Dates: start: 20100519, end: 20101117
  14. SALBUTAMOL [Concomitant]
     Indication: COUGH
     Dosage: UNK, AS REQ^D (2 PUFFS PRN)
     Route: 055
     Dates: start: 20070213
  15. SALBUTAMOL [Concomitant]
     Indication: WHEEZING
  16. BECLOMETASONE [Concomitant]
     Indication: COUGH
     Dosage: UNK,(2 PUFFS 4X/DAY:QID)
     Route: 055
     Dates: start: 20070213
  17. BECLOMETASONE [Concomitant]
     Indication: WHEEZING
  18. ALPHAGAN [Concomitant]
     Indication: VISUAL ACUITY REDUCED
     Dosage: 1 UNK, 2X/DAY:BID (1 DROP TWICE DAILY)
     Route: 047
     Dates: start: 20100310

REACTIONS (1)
  - Laryngeal disorder [Unknown]
